FAERS Safety Report 14319931 (Version 2)
Quarter: 2018Q1

REPORT INFORMATION
  Report Type: Spontaneous
  Country: FR (occurrence: FR)
  Receive Date: 20171222
  Receipt Date: 20180111
  Transmission Date: 20180509
  Serious: Yes (Hospitalization)
  Sender: FDA-Public Use
  Company Number: FR-PFIZER INC-2017541255

PATIENT
  Age: 22 Year
  Sex: Female
  Weight: 90 kg

DRUGS (9)
  1. SERTRALINE [Suspect]
     Active Substance: SERTRALINE HYDROCHLORIDE
     Dosage: 50 MG, 2X/DAY
     Dates: end: 201512
  2. ABILIFY [Suspect]
     Active Substance: ARIPIPRAZOLE
     Dosage: ONE OR TWO TABLETS PER DAY (DOSE-10 TAB IN SINGLE DOSE)
     Route: 048
     Dates: end: 201512
  3. PRAZEPAM [Suspect]
     Active Substance: PRAZEPAM
     Dosage: 29 TABLETS IN SINGLE DOSE
     Route: 048
     Dates: start: 20160716, end: 20160716
  4. SERTRALINE [Suspect]
     Active Substance: SERTRALINE HYDROCHLORIDE
     Dosage: 500 MG, SINGLE (DOSE-10 TAB IN SINGLE DOSE)
     Dates: start: 20160716, end: 20160716
  5. LEVOCETIRIZINE DIHYDROCHLORIDE. [Suspect]
     Active Substance: LEVOCETIRIZINE DIHYDROCHLORIDE
     Dosage: UNK
     Dates: start: 20160716, end: 20160716
  6. ATARAX [Suspect]
     Active Substance: HYDROXYZINE HYDROCHLORIDE
     Dosage: 17 TABLETS IN SINGLE DOSE
     Route: 048
     Dates: start: 20160716, end: 20160716
  7. ABILIFY [Suspect]
     Active Substance: ARIPIPRAZOLE
     Dosage: 100 MG (10 TABLETS IN A SINGLE DOSE)
     Route: 048
     Dates: start: 20160716, end: 20160716
  8. PRAZEPAM [Suspect]
     Active Substance: PRAZEPAM
     Dosage: 29 TABLETS IN SINGLE DOSE
     Route: 048
     Dates: end: 201512
  9. ATARAX [Suspect]
     Active Substance: HYDROXYZINE HYDROCHLORIDE
     Dosage: 17 TABLETS IN SINGLE DOSE
     Route: 065
     Dates: end: 201512

REACTIONS (5)
  - Hypotonia [Recovered/Resolved]
  - Heart rate decreased [Recovered/Resolved]
  - Hypotension [Recovered/Resolved]
  - Overdose [Recovered/Resolved]
  - Somnolence [Recovered/Resolved]

NARRATIVE: CASE EVENT DATE: 20160716
